FAERS Safety Report 4294347-X (Version None)
Quarter: 2004Q1

REPORT INFORMATION
  Report Type: 
  Country: None (occurrence: None)
  Receive Date: 20040211
  Receipt Date: 20040128
  Transmission Date: 20041129
  Serious: Yes (Other)
  Sender: FDA-Public Use
  Company Number: USA040157906

PATIENT
  Age: 6 Year
  Sex: Male
  Weight: 50 kg

DRUGS (3)
  1. ZYPREXA [Suspect]
     Indication: ABNORMAL BEHAVIOUR
     Dosage: 15 MG/DAILY
  2. IMIPRAMINE [Concomitant]
  3. CLONIDINE [Concomitant]

REACTIONS (12)
  - ABNORMAL BEHAVIOUR [None]
  - AGGRESSION [None]
  - ANGER [None]
  - DRUG EFFECT DECREASED [None]
  - DYSPNOEA [None]
  - DYSURIA [None]
  - GASTROINTESTINAL MOTILITY DISORDER [None]
  - HUNGER [None]
  - HYPERPHAGIA [None]
  - INTENTIONAL SELF-INJURY [None]
  - PSYCHOMOTOR HYPERACTIVITY [None]
  - WEIGHT INCREASED [None]
